FAERS Safety Report 8563972-X (Version None)
Quarter: 2012Q3

REPORT INFORMATION
  Report Type: 
  Country: None (occurrence: None)
  Receive Date: 20120803
  Receipt Date: 20120728
  Transmission Date: 20120928
  Serious: Yes (Hospitalization, Other)
  Sender: FDA-Public Use
  Company Number: PHHY2012BR066207

PATIENT
  Sex: Female

DRUGS (2)
  1. FORMOTEROL FUMARATE [Suspect]
     Indication: DYSPNOEA
     Dosage: TWO TIMES A DAY
  2. FORMOTEROL FUMARATE [Suspect]
     Indication: BRONCHIAL DISORDER

REACTIONS (1)
  - LUNG INFECTION [None]
